FAERS Safety Report 25868802 (Version 3)
Quarter: 2025Q4

REPORT INFORMATION
  Report Type: Report from Study
  Country: MX (occurrence: MX)
  Receive Date: 20251001
  Receipt Date: 20251211
  Transmission Date: 20260117
  Serious: Yes (Hospitalization, Other)
  Sender: ABBVIE
  Company Number: MX-ABBVIE-6377256

PATIENT
  Age: 48 Year
  Sex: Male
  Weight: 66 kg

DRUGS (8)
  1. HUMIRA [Suspect]
     Active Substance: ADALIMUMAB
     Indication: Psoriatic arthropathy
     Dosage: 40 MILLIGRAM
     Route: 058
     Dates: start: 202507
  2. HUMIRA [Suspect]
     Active Substance: ADALIMUMAB
     Dosage: 40 MILLIGRAM?FIRST ADMIN DATE-2011
     Route: 058
     Dates: end: 202406
  3. Filatil [Concomitant]
     Indication: Psoriatic arthropathy
  4. COSENTYX [Suspect]
     Active Substance: SECUKINUMAB
     Indication: Psoriatic arthropathy
     Route: 058
     Dates: start: 202504, end: 202506
  5. PREDNISONE [Concomitant]
     Active Substance: PREDNISONE
     Indication: Psoriatic arthropathy
     Dosage: FREQUENCY: 0.5 TABLET PER DAY
     Dates: start: 2011
  6. METHOTREXATE [Concomitant]
     Active Substance: METHOTREXATE
     Indication: Psoriatic arthropathy
     Dosage: 2.5 MILLIGRAM
     Dates: start: 2011, end: 2020
  7. HYRIMOZ [Suspect]
     Active Substance: ADALIMUMAB-ADAZ
     Indication: Psoriatic arthropathy
     Dosage: 40 MILLIGRAM
     Route: 058
     Dates: start: 202507
  8. ADALIMUMAB [Suspect]
     Active Substance: ADALIMUMAB
     Indication: Psoriatic arthropathy
     Route: 065
     Dates: start: 202406, end: 202504

REACTIONS (15)
  - Subcutaneous abscess [Recovering/Resolving]
  - Axillary mass [Recovering/Resolving]
  - Arthralgia [Recovered/Resolved]
  - Hidradenitis [Recovered/Resolved]
  - Psoriasis [Not Recovered/Not Resolved]
  - Drug ineffective [Unknown]
  - Sweat gland infection [Not Recovered/Not Resolved]
  - Arthralgia [Not Recovered/Not Resolved]
  - Underweight [Not Recovered/Not Resolved]
  - Hypertension [Not Recovered/Not Resolved]
  - Osteopenia [Not Recovered/Not Resolved]
  - Discomfort [Unknown]
  - Psoriatic arthropathy [Not Recovered/Not Resolved]
  - Hypertension [Unknown]
  - Malaise [Unknown]

NARRATIVE: CASE EVENT DATE: 20240701
